FAERS Safety Report 11882009 (Version 1)
Quarter: 2015Q4

REPORT INFORMATION
  Report Type: Spontaneous
  Country: None (occurrence: None)
  Receive Date: 20151230
  Receipt Date: 20151230
  Transmission Date: 20160305
  Serious: No
  Sender: FDA-Public Use
  Company Number: None

PATIENT
  Age: 57 Year
  Sex: Male

DRUGS (4)
  1. HUMALOG [Suspect]
     Active Substance: INSULIN LISPRO
  2. TOUJEO [Concomitant]
     Active Substance: INSULIN GLARGINE
  3. METFORMAN [Concomitant]
  4. GLIPIZIDE. [Suspect]
     Active Substance: GLIPIZIDE

REACTIONS (6)
  - Nail injury [None]
  - Intentional product misuse [None]
  - Laceration [None]
  - Injection site bruising [None]
  - Limb injury [None]
  - Injection site haemorrhage [None]
